FAERS Safety Report 5381064-8 (Version None)
Quarter: 2007Q3

REPORT INFORMATION
  Report Type: 
  Country: None (occurrence: None)
  Receive Date: 20070706
  Receipt Date: 20070626
  Transmission Date: 20080115
  Serious: Yes (Other)
  Sender: FDA-Public Use
  Company Number: US-PFIZER INC-2007036153

PATIENT
  Sex: Male
  Weight: 90.7 kg

DRUGS (6)
  1. CHANTIX [Suspect]
     Indication: SMOKING CESSATION THERAPY
     Dosage: DAILY DOSE:1MG
     Dates: start: 20070401, end: 20070504
  2. CHANTIX [Suspect]
     Indication: TOBACCO USER
  3. PROZAC [Suspect]
     Indication: DEPRESSION
  4. DIAZEPAM [Concomitant]
     Indication: ANXIETY
  5. SAW PALMETTO [Concomitant]
  6. FLUOXETINE [Concomitant]

REACTIONS (7)
  - ABNORMAL DREAMS [None]
  - AGITATION [None]
  - DYSPNOEA [None]
  - HYPOVENTILATION [None]
  - NIGHTMARE [None]
  - PRURITUS [None]
  - RASH [None]
